FAERS Safety Report 8425342-4 (Version None)
Quarter: 2012Q2

REPORT INFORMATION
  Report Type: 
  Country: None (occurrence: None)
  Receive Date: 20120611
  Receipt Date: 20120604
  Transmission Date: 20120825
  Serious: No
  Sender: FDA-Public Use
  Company Number: US-BAYER-2012-056733

PATIENT
  Age: 85 Year
  Sex: Female
  Weight: 61 kg

DRUGS (4)
  1. ALEVE (CAPLET) [Suspect]
     Indication: ARTHRITIS
     Dosage: UNK UNK, ONCE
     Route: 048
     Dates: start: 20120201, end: 20120201
  2. DIOVAN [Concomitant]
  3. NORVASC [Concomitant]
  4. CALCIUM [Concomitant]

REACTIONS (1)
  - ARTHRITIS [None]
